FAERS Safety Report 9498024 (Version 1)
Quarter: 2013Q3

REPORT INFORMATION
  Report Type: Spontaneous
  Country: US (occurrence: US)
  Receive Date: 20130904
  Receipt Date: 20130904
  Transmission Date: 20140515
  Serious: Yes (Other)
  Sender: FDA-Public Use
  Company Number: US-BAYER-2013-105599

PATIENT
  Age: 27 Year
  Sex: Female

DRUGS (1)
  1. MIRENA [Suspect]
     Dosage: 20 MCG/24HR, CONT
     Route: 015
     Dates: start: 20091113, end: 20120502

REACTIONS (7)
  - Uterine perforation [None]
  - Abdominal pain lower [None]
  - Medical device pain [None]
  - Injury [None]
  - Peritoneal adhesions [None]
  - Uterine fibrosis [None]
  - Infection [None]
